FAERS Safety Report 10130694 (Version 1)
Quarter: 2014Q2

REPORT INFORMATION
  Report Type: Spontaneous
  Country: US (occurrence: US)
  Receive Date: 20140428
  Receipt Date: 20140428
  Transmission Date: 20141212
  Serious: No
  Sender: FDA-Public Use
  Company Number: US-PFIZER INC-2014116691

PATIENT
  Age: 84 Year
  Sex: Female
  Weight: 81.2 kg

DRUGS (1)
  1. LYRICA [Suspect]
     Indication: NEUROPATHY PERIPHERAL
     Dosage: 75 MG, 2X/DAY

REACTIONS (2)
  - Malaise [Unknown]
  - Memory impairment [Unknown]
